FAERS Safety Report 6216599-9 (Version None)
Quarter: 2009Q2

REPORT INFORMATION
  Report Type: 
  Country: None (occurrence: None)
  Receive Date: 20090605
  Receipt Date: 20090527
  Transmission Date: 20091009
  Serious: Yes (Hospitalization, Other)
  Sender: FDA-Public Use
  Company Number: PHHY2009JP15942

PATIENT
  Sex: Female
  Weight: 39 kg

DRUGS (14)
  1. GLEEVEC [Suspect]
     Indication: CHRONIC MYELOID LEUKAEMIA
     Dosage: 400 MG, QD
     Route: 048
     Dates: start: 20080806, end: 20081029
  2. GLEEVEC [Suspect]
     Dosage: 200 MG, QD
     Route: 048
     Dates: start: 20081208, end: 20090106
  3. HUMALOG [Concomitant]
     Indication: DIABETES MELLITUS
     Dosage: 24 DF, UNK
     Route: 058
     Dates: start: 20080806
  4. LANTUS [Concomitant]
     Indication: DIABETES MELLITUS
     Dosage: 28 DF, UNK
     Route: 058
  5. FUROSEMIDE [Concomitant]
     Indication: POLYURIA
     Dosage: 40 MG, UNK
     Route: 048
     Dates: start: 20080829
  6. FUROSEMIDE [Concomitant]
     Dosage: 40 MG, UNK
     Dates: start: 20090108
  7. FUROSEMIDE [Concomitant]
     Dosage: 40 MG, UNK
     Dates: start: 20090111
  8. FUROSEMIDE [Concomitant]
     Dosage: 80 MG, UNK
     Route: 048
  9. FUROSEMIDE [Concomitant]
     Dosage: 120 MG, UNK
     Dates: start: 20090213
  10. ALDACTONE [Concomitant]
     Indication: POLYURIA
     Dosage: 50 MG, UNK
     Route: 048
     Dates: start: 20080829
  11. ALDACTONE [Concomitant]
     Dosage: 80 MG, UNK
     Route: 048
  12. ALDACTONE [Concomitant]
     Dosage: 100 MG, UNK
     Route: 048
  13. ALDACTONE [Concomitant]
     Dosage: 25 MG, UNK
     Dates: start: 20090203
  14. SALOBEL [Concomitant]
     Indication: HYPERURICAEMIA
     Dosage: 100 MG, UNK
     Route: 048
     Dates: start: 20080903

REACTIONS (13)
  - ASCITES [None]
  - BLOOD CHLORIDE DECREASED [None]
  - BLOOD POTASSIUM ABNORMAL [None]
  - BLOOD SODIUM DECREASED [None]
  - DIALYSIS [None]
  - FLUID RETENTION [None]
  - HAEMODIALYSIS [None]
  - LIVER DISORDER [None]
  - MYALGIA [None]
  - OEDEMA PERIPHERAL [None]
  - RENAL DISORDER [None]
  - THROMBOTIC THROMBOCYTOPENIC PURPURA [None]
  - WEIGHT INCREASED [None]
